FAERS Safety Report 7231363-X (Version None)
Quarter: 2011Q1

REPORT INFORMATION
  Report Type: 
  Country: None (occurrence: None)
  Receive Date: 20110118
  Receipt Date: 20110113
  Transmission Date: 20110831
  Serious: Yes (Hospitalization, Other)
  Sender: FDA-Public Use
  Company Number: CH-MERCK-1101USA01333

PATIENT
  Age: 78 Year
  Sex: Male
  Weight: 80 kg

DRUGS (1)
  1. JANUVIA [Suspect]
     Indication: TYPE 2 DIABETES MELLITUS
     Route: 048
     Dates: start: 20100601, end: 20101101

REACTIONS (5)
  - CEREBELLAR SYNDROME [None]
  - PARAESTHESIA [None]
  - PETIT MAL EPILEPSY [None]
  - VIITH NERVE PARALYSIS [None]
  - HEMIPARESIS [None]
